FAERS Safety Report 9758858 (Version 1)
Quarter: 2013Q4

REPORT INFORMATION
  Report Type: Spontaneous
  Country: US (occurrence: None)
  Receive Date: 20131216
  Receipt Date: 20131216
  Transmission Date: 20140711
  Serious: Yes (Other)
  Sender: FDA-Public Use
  Company Number: 081968

PATIENT
  Sex: Female

DRUGS (3)
  1. CIMZIA [Suspect]
     Indication: CROHN^S DISEASE
     Dosage: (UNKNOWN DOSE)
  2. METRONIDAZOLE [Concomitant]
  3. PREDNISONE [Concomitant]

REACTIONS (3)
  - Rash generalised [None]
  - Rash pruritic [None]
  - Injection site erythema [None]
